FAERS Safety Report 4514841-3 (Version None)
Quarter: 2004Q4

REPORT INFORMATION
  Report Type: 
  Country: None (occurrence: None)
  Receive Date: 20041126
  Receipt Date: 20041111
  Transmission Date: 20050328
  Serious: Yes (Hospitalization)
  Sender: FDA-Public Use
  Company Number: PHHO2004JP15044

PATIENT
  Age: 76 Year
  Sex: Male
  Weight: 65.9984 kg

DRUGS (4)
  1. VISUDYNE [Suspect]
     Indication: MACULAR DEGENERATION
     Dosage: 5.4 ML DAILY IV
     Route: 042
     Dates: start: 20040901, end: 20040901
  2. XALATAN [Concomitant]
  3. HYALEIN [Concomitant]
  4. CATALAN [Concomitant]

REACTIONS (2)
  - RETINAL HAEMORRHAGE [None]
  - VITREOUS HAEMORRHAGE [None]
